FAERS Safety Report 12843623 (Version 3)
Quarter: 2016Q4

REPORT INFORMATION
  Report Type: Spontaneous
  Country: AT (occurrence: AT)
  Receive Date: 20161013
  Receipt Date: 20161027
  Transmission Date: 20170207
  Serious: Yes (Hospitalization)
  Sender: FDA-Public Use
  Company Number: AT-SA-2016SA184846

PATIENT
  Sex: Male

DRUGS (2)
  1. LOVENOX [Suspect]
     Active Substance: ENOXAPARIN SODIUM
     Indication: MYOCARDIAL BRIDGING
     Dosage: START DATE: AFTER STOPPING ADMINISTRATION OF MARCOUMAR
     Route: 065
  2. MARCOUMAR [Concomitant]
     Active Substance: PHENPROCOUMON
     Dosage: START DATE: BEFORE ADMINISTRATION OF LOVENOX
     Route: 065

REACTIONS (2)
  - Cerebrovascular accident [Unknown]
  - Off label use [Unknown]
